FAERS Safety Report 23995642 (Version 3)
Quarter: 2025Q4

REPORT INFORMATION
  Report Type: Spontaneous
  Country: US (occurrence: US)
  Receive Date: 20240620
  Receipt Date: 20251209
  Transmission Date: 20260118
  Serious: No
  Sender: SANOFI AVENTIS
  Company Number: US-SA-SAC20240614000393

PATIENT
  Age: 45 Year
  Sex: Female

DRUGS (4)
  1. DUPIXENT [Suspect]
     Active Substance: DUPILUMAB
     Indication: Eczema
     Dosage: 300 MG, QOW
     Route: 058
     Dates: start: 20240123
  2. DUPIXENT [Suspect]
     Active Substance: DUPILUMAB
     Indication: Dermatitis atopic
  3. PREGABALIN [Suspect]
     Active Substance: PREGABALIN
     Dosage: UNK UNK, QID
  4. LITHIUM [Concomitant]
     Active Substance: LITHIUM
     Dosage: UNK

REACTIONS (10)
  - Brain fog [Unknown]
  - Skin exfoliation [Not Recovered/Not Resolved]
  - Dermatitis atopic [Unknown]
  - Pruritus [Not Recovered/Not Resolved]
  - Rash macular [Unknown]
  - Eczema [Unknown]
  - Skin fissures [Unknown]
  - Product dose omission issue [Unknown]
  - Rash [Unknown]
  - Incorrect dose administered [Unknown]

NARRATIVE: CASE EVENT DATE: 20240101
